FAERS Safety Report 8273187-0 (Version None)
Quarter: 2012Q2

REPORT INFORMATION
  Report Type: 
  Country: None (occurrence: None)
  Receive Date: 20120411
  Receipt Date: 20120322
  Transmission Date: 20120825
  Serious: No
  Sender: FDA-Public Use
  Company Number: US-ROXANE LABORATORIES, INC.-2012-RO-00606RO

PATIENT
  Sex: Female

DRUGS (1)
  1. IPRATROPIUM BROMIDE [Suspect]
     Indication: RHINITIS ALLERGIC
     Route: 045
     Dates: end: 20120205

REACTIONS (5)
  - COUGH [None]
  - RHINITIS [None]
  - NASAL CONGESTION [None]
  - SPUTUM INCREASED [None]
  - PALPITATIONS [None]
